FAERS Safety Report 4599709-9 (Version None)
Quarter: 2005Q1

REPORT INFORMATION
  Report Type: 
  Country: None (occurrence: None)
  Receive Date: 20050307
  Receipt Date: 20050301
  Transmission Date: 20050727
  Serious: Yes (Other)
  Sender: FDA-Public Use
  Company Number: US-JNJFOC-20050300356

PATIENT
  Age: 17 Year
  Sex: Male

DRUGS (4)
  1. IBUPROFEN [Suspect]
     Indication: CYSTIC FIBROSIS
     Route: 049
  2. PANCREATIC ENZYMES [Suspect]
     Indication: CYSTIC FIBROSIS
  3. ANTIBIOTICS [Suspect]
     Indication: DRUG USE FOR UNKNOWN INDICATION
     Route: 049
  4. VITAMINS [Suspect]
     Indication: DRUG USE FOR UNKNOWN INDICATION
     Route: 049

REACTIONS (2)
  - GASTROINTESTINAL HAEMORRHAGE [None]
  - OESOPHAGEAL ULCER [None]
